FAERS Safety Report 21299384 (Version 3)
Quarter: 2022Q4

REPORT INFORMATION
  Report Type: Spontaneous
  Country: US (occurrence: US)
  Receive Date: 20220906
  Receipt Date: 20221014
  Transmission Date: 20230113
  Serious: No
  Sender: FDA-Public Use
  Company Number: US-GLAXOSMITHKLINE-USCH2022031032

PATIENT
  Sex: Female

DRUGS (3)
  1. EQUATE NICOTINE [Suspect]
     Active Substance: NICOTINE
     Indication: Product used for unknown indication
     Dosage: UNK
  2. NICODERM CQ [Suspect]
     Active Substance: NICOTINE
     Indication: Product used for unknown indication
     Dosage: UNK
  3. NICODERM CQ [Suspect]
     Active Substance: NICOTINE

REACTIONS (7)
  - Application site irritation [Unknown]
  - Application site pruritus [Unknown]
  - Expired product administered [Unknown]
  - Product complaint [Unknown]
  - Skin irritation [Unknown]
  - Pruritus [Unknown]
  - Product adhesion issue [Unknown]
